FAERS Safety Report 6142229-0 (Version None)
Quarter: 2009Q2

REPORT INFORMATION
  Report Type: 
  Country: None (occurrence: None)
  Receive Date: 20090403
  Receipt Date: 20080328
  Transmission Date: 20091009
  Serious: Yes (Death, Hospitalization, Other)
  Sender: FDA-Public Use
  Company Number: US-ASTRAZENECA-2006UW21610

PATIENT
  Age: 14325 Day
  Sex: Male
  Weight: 171 kg

DRUGS (21)
  1. SEROQUEL [Suspect]
     Indication: PSYCHOTIC DISORDER
     Dosage: 100 MG TO 300 MG
     Route: 048
     Dates: start: 19990623, end: 20041205
  2. SEROQUEL [Suspect]
     Dosage: 100MG-900MG
     Route: 048
     Dates: start: 19990623
  3. ZYPREXA [Concomitant]
  4. DEPAKOTE [Concomitant]
     Dates: start: 20040704
  5. RISPERDAL [Concomitant]
     Dates: start: 20040704
  6. KLONOPIN [Concomitant]
     Dates: start: 20040704
  7. COZAAR [Concomitant]
     Dates: start: 20040704
  8. LITHIUM CARBONATE [Concomitant]
     Dates: start: 20040707
  9. LASIX [Concomitant]
  10. GLUCOTROL [Concomitant]
  11. POTASSIUM CHLORIDE [Concomitant]
  12. HYDROCODONE BITARTRATE [Concomitant]
  13. TOPAMAX [Concomitant]
  14. LOXITANE [Concomitant]
  15. NEURONTIN [Concomitant]
  16. COGENTIN [Concomitant]
  17. HALDOL [Concomitant]
  18. LACTULOSE [Concomitant]
     Dates: start: 20020522
  19. TOPROL-XL [Concomitant]
  20. OXYBUTYNIN CHLORIDE [Concomitant]
  21. THEOPHYLLINE [Concomitant]

REACTIONS (44)
  - ABDOMINAL DISCOMFORT [None]
  - ABNORMAL WEIGHT GAIN [None]
  - AFFECTIVE DISORDER [None]
  - AGITATION [None]
  - ANXIETY [None]
  - ASTHMA [None]
  - CLAUSTROPHOBIA [None]
  - COMMUNICATION DISORDER [None]
  - CONFUSIONAL STATE [None]
  - DEATH [None]
  - DELUSION [None]
  - DEPRESSION [None]
  - DIABETES MELLITUS [None]
  - DRY MOUTH [None]
  - DYSPHAGIA [None]
  - FATIGUE [None]
  - FLIGHT OF IDEAS [None]
  - HALLUCINATION [None]
  - HYPERSOMNIA [None]
  - HYPERTENSION [None]
  - HYPOMANIA [None]
  - ILL-DEFINED DISORDER [None]
  - INFLUENZA [None]
  - IRRITABILITY [None]
  - LOOSE ASSOCIATIONS [None]
  - MANIA [None]
  - NASOPHARYNGITIS [None]
  - NEUROPATHY PERIPHERAL [None]
  - NIGHTMARE [None]
  - PARANOIA [None]
  - PRESSURE OF SPEECH [None]
  - RENAL IMPAIRMENT [None]
  - RESTLESSNESS [None]
  - SALIVARY HYPERSECRETION [None]
  - SCHIZOAFFECTIVE DISORDER [None]
  - SLEEP DISORDER [None]
  - SOMATOFORM DISORDER [None]
  - SOMNOLENCE [None]
  - SWOLLEN TONGUE [None]
  - TARDIVE DYSKINESIA [None]
  - TREMOR [None]
  - URINARY INCONTINENCE [None]
  - URINARY RETENTION [None]
  - VERBAL ABUSE [None]
